FAERS Safety Report 10091154 (Version 1)
Quarter: 2014Q2

REPORT INFORMATION
  Report Type: Spontaneous
  Country: US (occurrence: US)
  Receive Date: 20140421
  Receipt Date: 20140421
  Transmission Date: 20141212
  Serious: No
  Sender: FDA-Public Use
  Company Number: US-GILEAD-2012-0062418

PATIENT
  Age: 60 Year
  Sex: Female

DRUGS (13)
  1. LETAIRIS [Suspect]
     Indication: PULMONARY HYPERTENSION
     Dosage: 5 MG, UNK
     Route: 048
     Dates: start: 20120906
  2. EPOPROSTENOL [Concomitant]
  3. SILDENAFIL [Concomitant]
  4. WARFARIN [Concomitant]
  5. FUROSEMIDE [Concomitant]
  6. DIGOXIN [Concomitant]
  7. SIMVASTATIN [Concomitant]
  8. ALENDRONATE [Concomitant]
  9. GABAPENTIN [Concomitant]
  10. FAMOTIDINE [Concomitant]
  11. NORCO [Concomitant]
  12. DOCUSATE SODIUM [Concomitant]
  13. CALCIUM/VITAMIN D                  /00188401/ [Concomitant]

REACTIONS (1)
  - Headache [Unknown]
